FAERS Safety Report 19511147 (Version 1)
Quarter: 2021Q3

REPORT INFORMATION
  Report Type: Other
  Country: FR (occurrence: FR)
  Receive Date: 20210709
  Receipt Date: 20210709
  Transmission Date: 20211014
  Serious: Yes (Hospitalization)
  Sender: FDA-Public Use
  Company Number: FR-CADILA HEALTHCARE LIMITED-FR-ZYDUS-067527

PATIENT

DRUGS (3)
  1. TRAMADOL. [Suspect]
     Active Substance: TRAMADOL
     Indication: PRODUCT USED FOR UNKNOWN INDICATION
     Dosage: UNKNOWN
     Route: 065
     Dates: start: 20210425, end: 20210425
  2. ALPRAZOLAM. [Suspect]
     Active Substance: ALPRAZOLAM
     Indication: SUICIDAL IDEATION
     Dosage: 1.13 MILLIGRAM(INTERVAL?1 TOTAL)
     Route: 048
     Dates: start: 202104, end: 20210427
  3. COCAINE [Suspect]
     Active Substance: COCAINE
     Indication: PRODUCT USED FOR UNKNOWN INDICATION
     Dosage: UNKNOWN
     Route: 065
     Dates: start: 20210424, end: 20210425

REACTIONS (5)
  - Drug abuse [Not Recovered/Not Resolved]
  - Electrocardiogram change [Recovered/Resolved]
  - Multiple injuries [Recovered/Resolved]
  - Road traffic accident [Recovered/Resolved]
  - Suicide attempt [Recovered/Resolved]

NARRATIVE: CASE EVENT DATE: 20210425
